FAERS Safety Report 18827003 (Version 1)
Quarter: 2021Q1

REPORT INFORMATION
  Report Type: Spontaneous
  Country: US (occurrence: US)
  Receive Date: 20210202
  Receipt Date: 20210202
  Transmission Date: 20210419
  Serious: Yes (Hospitalization, Other)
  Sender: FDA-Public Use
  Company Number: US-009507513-2101USA012881

PATIENT
  Age: 33 Year
  Sex: Female

DRUGS (1)
  1. KEYTRUDA [Suspect]
     Active Substance: PEMBROLIZUMAB
     Dosage: 200 MILLIGRAM
     Route: 042

REACTIONS (3)
  - Off label use [Unknown]
  - Rhabdomyolysis [Recovering/Resolving]
  - Immune-mediated myositis [Recovering/Resolving]
